FAERS Safety Report 14278120 (Version 1)
Quarter: 2017Q4

REPORT INFORMATION
  Report Type: Spontaneous
  Country: GB (occurrence: GB)
  Receive Date: 20171211
  Receipt Date: 20171211
  Transmission Date: 20180321
  Serious: Yes (Other)
  Sender: FDA-Public Use
  Company Number: GB-OTSUKA-DJ201210309

PATIENT
  Age: 64 Year
  Sex: Female
  Weight: 88.9 kg

DRUGS (2)
  1. ABILIFY [Suspect]
     Active Substance: ARIPIPRAZOLE
     Indication: DEPRESSION
     Dosage: UNK
     Route: 048
  2. THYROXINE [Concomitant]
     Active Substance: LEVOTHYROXINE
     Indication: PRODUCT USED FOR UNKNOWN INDICATION
     Dosage: UNK
     Route: 065

REACTIONS (6)
  - Malpositioned teeth [Unknown]
  - Product use in unapproved indication [Unknown]
  - Discomfort [Unknown]
  - Skin tightness [Recovered/Resolved]
  - Jaw disorder [Unknown]
  - Tremor [Recovered/Resolved]
